FAERS Safety Report 4605931-5 (Version None)
Quarter: 2005Q1

REPORT INFORMATION
  Report Type: 
  Country: None (occurrence: None)
  Receive Date: 20050116
  Receipt Date: 20041119
  Transmission Date: 20050727
  Serious: Yes (Other)
  Sender: FDA-Public Use
  Company Number: PHEH2004US12587

PATIENT
  Age: 47 Year
  Sex: Male

DRUGS (1)
  1. GLEEVEC [Suspect]
     Indication: ACUTE LYMPHOCYTIC LEUKAEMIA
     Dosage: UNK, 800 MG,

REACTIONS (3)
  - BONE MARROW TRANSPLANT [None]
  - DRUG RESISTANCE [None]
  - LEUKAEMIA RECURRENT [None]
